FAERS Safety Report 24242532 (Version 1)
Quarter: 2024Q3

REPORT INFORMATION
  Report Type: Spontaneous
  Country: JP (occurrence: JP)
  Receive Date: 20240823
  Receipt Date: 20240823
  Transmission Date: 20241017
  Serious: Yes (Death, Hospitalization, Other)
  Sender: INVENTIA HEALTHCARE
  Company Number: JP-Inventia-000742

PATIENT
  Age: 79 Year
  Sex: Male

DRUGS (2)
  1. LANSOPRAZOLE [Suspect]
     Active Substance: LANSOPRAZOLE
     Indication: Pneumonia
  2. CEFTRIAXONE [Suspect]
     Active Substance: CEFTRIAXONE\CEFTRIAXONE SODIUM
     Indication: Pneumonia
     Dosage: 10 DAYS (1 G/DAY)

REACTIONS (2)
  - Cardiac arrest [Fatal]
  - Hypokalaemia [Unknown]
